FAERS Safety Report 22023902 (Version 1)
Quarter: 2023Q1

REPORT INFORMATION
  Report Type: Spontaneous
  Country: US (occurrence: US)
  Receive Date: 20230223
  Receipt Date: 20230223
  Transmission Date: 20230418
  Serious: Yes (Death, Hospitalization, Other)
  Sender: FDA-Public Use
  Company Number: US-SPECGX-T202300157

PATIENT
  Age: 17 Year
  Sex: Female

DRUGS (5)
  1. ROXICODONE [Suspect]
     Active Substance: OXYCODONE HYDROCHLORIDE
     Indication: Product used for unknown indication
     Dosage: UNK
     Route: 048
  2. ACETAMINOPHEN [Suspect]
     Active Substance: ACETAMINOPHEN
     Indication: Product used for unknown indication
     Dosage: UNK
     Route: 065
  3. DRONABINOL [Suspect]
     Active Substance: DRONABINOL
     Indication: Product used for unknown indication
     Dosage: UNK
     Route: 065
  4. CAFFEINE [Suspect]
     Active Substance: CAFFEINE
     Indication: Product used for unknown indication
     Dosage: UNK
     Route: 065
  5. FENTANYL [Suspect]
     Active Substance: FENTANYL
     Indication: Product used for unknown indication
     Dosage: UNK
     Route: 065

REACTIONS (20)
  - Brain oedema [Fatal]
  - Pulmonary congestion [Fatal]
  - Cerebral congestion [Fatal]
  - Cardio-respiratory arrest [Fatal]
  - Foaming at mouth [Unknown]
  - Breath sounds abnormal [Unknown]
  - Coma scale abnormal [Unknown]
  - Left ventricular dysfunction [Unknown]
  - Right ventricular dysfunction [Unknown]
  - Cerebral ischaemia [Unknown]
  - Urine output increased [Unknown]
  - Hypernatraemia [Unknown]
  - Unresponsive to stimuli [Unknown]
  - Electroencephalogram abnormal [Unknown]
  - Depressed level of consciousness [Unknown]
  - Hyperhidrosis [Unknown]
  - Tachycardia [Unknown]
  - Hypotension [Unknown]
  - Substance use [Unknown]
  - Suspected counterfeit product [Unknown]

NARRATIVE: CASE EVENT DATE: 20210101
